FAERS Safety Report 13736718 (Version 1)
Quarter: 2017Q3

REPORT INFORMATION
  Report Type: Spontaneous
  Country: US (occurrence: US)
  Receive Date: 20170710
  Receipt Date: 20170710
  Transmission Date: 20171127
  Serious: No
  Sender: FDA-Public Use
  Company Number: None

PATIENT
  Age: 64 Year
  Sex: Female

DRUGS (1)
  1. COSENTYX [Suspect]
     Active Substance: SECUKINUMAB
     Indication: MALAISE
     Dosage: 150 MG AT WEEK 4 AND THEN EVERY 4 WEEKS SUBCUTANEOUSLY
     Route: 058
     Dates: start: 20170425, end: 20170705

REACTIONS (8)
  - Muscle spasms [None]
  - Abdominal pain [None]
  - Nausea [None]
  - Arthritis [None]
  - Chills [None]
  - Fatigue [None]
  - Diarrhoea [None]
  - Asthenia [None]

NARRATIVE: CASE EVENT DATE: 20170630
